FAERS Safety Report 11971794 (Version 4)
Quarter: 2016Q2

REPORT INFORMATION
  Report Type: Spontaneous
  Country: RS (occurrence: RS)
  Receive Date: 20160128
  Receipt Date: 20160408
  Transmission Date: 20160815
  Serious: Yes (Death, Life-Threatening, Hospitalization, Other)
  Sender: FDA-Public Use
  Company Number: RS-GILEAD-2016-0194501

PATIENT
  Age: 60 Year
  Sex: Male
  Weight: 70 kg

DRUGS (14)
  1. VIREAD [Suspect]
     Active Substance: TENOFOVIR DISOPROXIL FUMARATE
     Indication: HEPATITIS B
  2. ZIDOVUDINE. [Concomitant]
     Active Substance: ZIDOVUDINE
     Dosage: UNK
     Dates: start: 20070529, end: 20121119
  3. VIREAD [Suspect]
     Active Substance: TENOFOVIR DISOPROXIL FUMARATE
     Indication: HIV INFECTION
     Dosage: 245 MG, UNK
     Route: 048
     Dates: start: 20120119, end: 20151102
  4. COMBIVIR [Concomitant]
     Active Substance: LAMIVUDINE\ZIDOVUDINE
     Indication: HEPATITIS B
  5. ALUVIA [Concomitant]
     Active Substance: LOPINAVIR\RITONAVIR
     Indication: HIV INFECTION
     Dosage: UNK
     Route: 048
     Dates: start: 20070529, end: 20151108
  6. MAXICEF [Concomitant]
     Dosage: 500 MG, UNK
     Route: 042
     Dates: start: 20151107, end: 20151122
  7. COMBIVIR [Concomitant]
     Active Substance: LAMIVUDINE\ZIDOVUDINE
     Indication: HIV INFECTION
  8. VANKOMYCIN ACTAVIS [Concomitant]
     Dosage: 500 MG, UNK
     Route: 042
     Dates: start: 20151116, end: 20151122
  9. MEROPENEM. [Concomitant]
     Active Substance: MEROPENEM
     Dosage: 500 MG, UNK
     Route: 042
     Dates: start: 20151102, end: 20151116
  10. SPIRONOLACTONE A L [Concomitant]
     Active Substance: SPIRONOLACTONE
     Dosage: UNK
     Dates: start: 20130614, end: 20150311
  11. CEFTRIAKSON [Concomitant]
     Active Substance: CEFTRIAXONE SODIUM
     Indication: SEPSIS
     Dosage: 2 G, UNK
     Route: 042
     Dates: start: 20151031, end: 20151102
  12. STOCRIN [Concomitant]
     Active Substance: EFAVIRENZ
  13. EPIVIR [Concomitant]
     Active Substance: LAMIVUDINE
     Indication: HIV INFECTION
     Dosage: 150 MG, UNK
     Route: 048
     Dates: start: 20120119, end: 20151108
  14. ZIAGEN [Concomitant]
     Active Substance: ABACAVIR SULFATE
     Dosage: UNK
     Dates: start: 20070529, end: 20121119

REACTIONS (5)
  - End stage renal disease [Unknown]
  - Nephropathy toxic [Fatal]
  - Sepsis [Unknown]
  - Renal failure [Unknown]
  - Haemodialysis [Unknown]

NARRATIVE: CASE EVENT DATE: 20120119
